FAERS Safety Report 7864066-9 (Version None)
Quarter: 2011Q4

REPORT INFORMATION
  Report Type: 
  Country: None (occurrence: None)
  Receive Date: 20111028
  Receipt Date: 20111020
  Transmission Date: 20120403
  Serious: Yes (Other)
  Sender: FDA-Public Use
  Company Number: IE-JNJFOC-20111004435

PATIENT
  Sex: Female

DRUGS (2)
  1. INFLIXIMAB, RECOMBINANT [Suspect]
     Indication: CHOLESTASIS
     Route: 042
     Dates: end: 20110908
  2. INFLIXIMAB, RECOMBINANT [Suspect]
     Indication: OSTEOARTHRITIS
     Route: 042
     Dates: end: 20110908

REACTIONS (1)
  - LUPUS-LIKE SYNDROME [None]
